FAERS Safety Report 6663161-X (Version None)
Quarter: 2010Q2

REPORT INFORMATION
  Report Type: 
  Country: None (occurrence: None)
  Receive Date: 20100401
  Receipt Date: 20100324
  Transmission Date: 20101027
  Serious: Yes (Hospitalization)
  Sender: FDA-Public Use
  Company Number: DE-ASTRAZENECA-2010SE12938

PATIENT
  Age: 44 Year
  Sex: Female

DRUGS (1)
  1. ASCOTOP NASAL [Suspect]
     Indication: MIGRAINE WITHOUT AURA
     Route: 045

REACTIONS (2)
  - ARTERIAL OCCLUSIVE DISEASE [None]
  - PERIPHERAL ISCHAEMIA [None]
